FAERS Safety Report 7171815-4 (Version None)
Quarter: 2010Q4

REPORT INFORMATION
  Report Type: 
  Country: None (occurrence: None)
  Receive Date: 20101217
  Receipt Date: 20101210
  Transmission Date: 20110411
  Serious: Yes (Other)
  Sender: FDA-Public Use
  Company Number: GB-ABBOTT-10P-167-0690644-00

PATIENT
  Age: 32 Year
  Sex: Male

DRUGS (5)
  1. NORVIR [Suspect]
     Indication: HIV INFECTION
  2. TENOFOVIR DISOPROXIL FUMARATE [Suspect]
     Indication: HIV INFECTION
  3. DARUNAVIR ETHANOLATE [Suspect]
     Indication: HIV INFECTION
  4. LAMIVUDINE [Suspect]
     Indication: HIV INFECTION
  5. DAPSONE [Concomitant]
     Indication: ANTIFUNGAL PROPHYLAXIS

REACTIONS (9)
  - ABSCESS [None]
  - DYSKINESIA [None]
  - ERYTHEMA [None]
  - IMMUNE RECONSTITUTION SYNDROME [None]
  - MYCOBACTERIUM AVIUM COMPLEX INFECTION [None]
  - NECROSIS [None]
  - PAROTID GLAND ENLARGEMENT [None]
  - PAROTITIS [None]
  - SWELLING FACE [None]
